FAERS Safety Report 14305205 (Version 2)
Quarter: 2017Q4

REPORT INFORMATION
  Report Type: Report from Study
  Country: ES (occurrence: ES)
  Receive Date: 20171219
  Receipt Date: 20171221
  Transmission Date: 20180321
  Serious: Yes (Other)
  Sender: FDA-Public Use
  Company Number: ES-PFIZER INC-2017535831

PATIENT
  Age: 3 Year
  Sex: Male

DRUGS (9)
  1. AMFOTERICINA B [Concomitant]
     Indication: OPPORTUNISTIC INFECTION PROPHYLAXIS
     Dosage: 24 MG, WEEKLY
     Route: 045
     Dates: start: 20170809, end: 20170820
  2. ONCASPAR [Suspect]
     Active Substance: PEGASPARGASE
     Indication: ACUTE LYMPHOCYTIC LEUKAEMIA
     Dosage: 541.6 MG, UNK
     Route: 030
     Dates: start: 20170808, end: 20170808
  3. ZOVIRAX [Concomitant]
     Active Substance: ACYCLOVIR
     Indication: OPPORTUNISTIC INFECTION PROPHYLAXIS
     Dosage: 360 MG, 400 MG/5 ML
     Route: 048
     Dates: start: 20170307
  4. FLUCONAZOLE. [Concomitant]
     Active Substance: FLUCONAZOLE
     Indication: OPPORTUNISTIC INFECTION PROPHYLAXIS
     Dosage: 75 MG, 1X/DAY
     Route: 048
     Dates: start: 20170809, end: 20170820
  5. DEXAMETHASONE. [Suspect]
     Active Substance: DEXAMETHASONE
     Indication: ACUTE LYMPHOCYTIC LEUKAEMIA
     Dosage: 10.8 MG, 1X/DAY
     Route: 042
     Dates: start: 20170802, end: 20170807
  6. FILGRASTIM [Concomitant]
     Active Substance: FILGRASTIM
     Indication: NEUTROPENIA
     Dosage: 60 UG, 1X/DAY
     Route: 058
     Dates: start: 20170809, end: 20170821
  7. SEPTRIN PAEDIATRIC [Concomitant]
     Indication: OPPORTUNISTIC INFECTION PROPHYLAXIS
     Dosage: 8 ML, 1X/DAY
     Route: 048
     Dates: start: 20170307
  8. CITARABINA [Suspect]
     Active Substance: CYTARABINE
     Indication: ACUTE LYMPHOCYTIC LEUKAEMIA
     Dosage: 2.16 G, ALTERNATE DAY
     Route: 042
     Dates: start: 20170802, end: 20170803
  9. ETOPOSIDE. [Suspect]
     Active Substance: ETOPOSIDE
     Indication: ACUTE LYMPHOCYTIC LEUKAEMIA
     Dosage: 271 MG, INTERVAL: 3 DAY
     Route: 042
     Dates: start: 20170804, end: 20170806

REACTIONS (3)
  - Pancytopenia [Recovered/Resolved]
  - Haematoma [Recovered/Resolved]
  - Febrile neutropenia [Recovered/Resolved]

NARRATIVE: CASE EVENT DATE: 20170811
